FAERS Safety Report 9114942 (Version 1)
Quarter: 2013Q1

REPORT INFORMATION
  Report Type: Spontaneous
  Country: US (occurrence: None)
  Receive Date: 20130220
  Receipt Date: 20130220
  Transmission Date: 20140127
  Serious: No
  Sender: FDA-Public Use
  Company Number: None

PATIENT
  Age: 62 Year
  Sex: Female

DRUGS (1)
  1. ENBREL 50 MG AMGEN [Suspect]
     Indication: RHEUMATOID ARTHRITIS
     Dosage: 50 MG  QW   SQ?FROM 01/01/2004  TO  PRESENT
     Route: 058
     Dates: start: 20040101

REACTIONS (1)
  - Papillary thyroid cancer [None]
